FAERS Safety Report 21887425 (Version 1)
Quarter: 2023Q1

REPORT INFORMATION
  Report Type: Report from Study
  Country: US (occurrence: US)
  Receive Date: 20230120
  Receipt Date: 20230120
  Transmission Date: 20230418
  Serious: No
  Sender: FDA-Public Use
  Company Number: US-ABBVIE-4276503

PATIENT
  Sex: Female

DRUGS (1)
  1. VENCLEXTA [Suspect]
     Active Substance: VENETOCLAX
     Indication: Lymphocytic leukaemia
     Dosage: TIME INTERVAL: 0.33333333 DAYS: FORM STRENGTH 100 MILLIGRAM
     Route: 048

REACTIONS (1)
  - Product use in unapproved indication [Unknown]
